FAERS Safety Report 19181894 (Version 8)
Quarter: 2024Q1

REPORT INFORMATION
  Report Type: Report from Study
  Country: US (occurrence: US)
  Receive Date: 20210426
  Receipt Date: 20240221
  Transmission Date: 20240409
  Serious: Yes (Hospitalization, Other)
  Sender: FDA-Public Use
  Company Number: US-TAKEDA-US201922428

PATIENT
  Sex: Female
  Weight: 98 kg

DRUGS (2)
  1. HUMAN IMMUNOGLOBULIN G [Suspect]
     Active Substance: HUMAN IMMUNOGLOBULIN G
     Indication: Primary immunodeficiency syndrome
     Dosage: 30 GRAM, Q4WEEKS
     Route: 042
  2. HUMAN IMMUNOGLOBULIN G [Suspect]
     Active Substance: HUMAN IMMUNOGLOBULIN G
     Indication: Immunodeficiency common variable
     Dosage: UNK, Q3WEEKS
     Route: 065

REACTIONS (8)
  - Pneumonia [Unknown]
  - Sepsis [Unknown]
  - Colitis [Unknown]
  - Rheumatoid arthritis [Unknown]
  - Blood pressure abnormal [Unknown]
  - Fatigue [Unknown]
  - Fall [Unknown]
  - Product use issue [Unknown]
